FAERS Safety Report 4990767-6 (Version None)
Quarter: 2006Q2

REPORT INFORMATION
  Report Type: 
  Country: None (occurrence: None)
  Receive Date: 20060428
  Receipt Date: 20060418
  Transmission Date: 20061013
  Serious: Yes (Disabling, Other)
  Sender: FDA-Public Use
  Company Number: S06-FRA-01327-01

PATIENT
  Age: 48 Year
  Sex: Female

DRUGS (1)
  1. SEROPLEX (ESCITALOPRAM) [Suspect]
     Indication: MAJOR DEPRESSION
     Dosage: 10 MG QD; PO
     Route: 048
     Dates: start: 20060322, end: 20060325

REACTIONS (3)
  - EPIDERMAL NECROSIS [None]
  - PHOTOSENSITIVITY REACTION [None]
  - RASH GENERALISED [None]
